FAERS Safety Report 6397766-0 (Version None)
Quarter: 2009Q4

REPORT INFORMATION
  Report Type: 
  Country: None (occurrence: None)
  Receive Date: 20091006
  Receipt Date: 20090923
  Transmission Date: 20100525
  Serious: Yes (Hospitalization)
  Sender: FDA-Public Use
  Company Number: 231182J09USA

PATIENT
  Age: 51 Year
  Sex: Female

DRUGS (3)
  1. REBIF [Suspect]
     Indication: MULTIPLE SCLEROSIS
     Dosage: 44 MCG, 3 IN 1 WEEKS, SUBCUTANEOUS
     Route: 058
     Dates: start: 20090724
  2. FOLIC ACID [Concomitant]
  3. TYLENOL [Concomitant]

REACTIONS (3)
  - DYSARTHRIA [None]
  - MUSCULAR WEAKNESS [None]
  - OPTIC NEURITIS [None]
